FAERS Safety Report 5096744-1 (Version None)
Quarter: 2006Q3

REPORT INFORMATION
  Report Type: 
  Country: None (occurrence: None)
  Receive Date: 20060831
  Receipt Date: 20060817
  Transmission Date: 20061208
  Serious: Yes (Other)
  Sender: FDA-Public Use
  Company Number: CA-2005-018799

PATIENT
  Age: 37 Year
  Sex: Female
  Weight: 79.4 kg

DRUGS (4)
  1. BETASERON [Suspect]
     Indication: RELAPSING-REMITTING MULTIPLE SCLEROSIS
     Dosage: 8 MIU, EVERY 2D, SUBCUTANEOUS
     Route: 058
     Dates: start: 20031021
  2. GABAPENTIN [Suspect]
     Indication: PRURITUS
     Dosage: UNK,  AS REQ'D, UNK
  3. CELEXA [Concomitant]
  4. ORTHO [Concomitant]

REACTIONS (7)
  - DIZZINESS [None]
  - FATIGUE [None]
  - LOSS OF CONSCIOUSNESS [None]
  - MUSCLE SPASTICITY [None]
  - PRURITUS [None]
  - SOMNOLENCE [None]
  - WEIGHT INCREASED [None]
